FAERS Safety Report 8778155 (Version 1)
Quarter: 2012Q4

REPORT INFORMATION
  Report Type: 
  Country: US (occurrence: US)
  Receive Date: 20120912
  Receipt Date: 20120912
  Transmission Date: 20130627
  Serious: Yes (Hospitalization, Other)
  Sender: FDA-Public Use
  Company Number: US-AMGEN-USASP2012057450

PATIENT

DRUGS (1)
  1. SENSIPAR [Suspect]
     Indication: HYPERPARATHYROIDISM TERTIARY
     Dosage: UNK

REACTIONS (3)
  - Hypercalcaemia [Unknown]
  - Tracheostomy [Unknown]
  - Enteral nutrition [Unknown]
